FAERS Safety Report 4942880-7 (Version None)
Quarter: 2006Q1

REPORT INFORMATION
  Report Type: 
  Country: None (occurrence: None)
  Receive Date: 20060314
  Receipt Date: 20060309
  Transmission Date: 20060701
  Serious: Yes (Hospitalization)
  Sender: FDA-Public Use
  Company Number: 2006UW03981

PATIENT
  Sex: Male
  Weight: 85.4 kg

DRUGS (7)
  1. IRESSA [Suspect]
     Indication: METASTATIC MALIGNANT MELANOMA
     Route: 048
     Dates: start: 20060117, end: 20060228
  2. MIDODRINE HCL [Concomitant]
     Indication: DIZZINESS
     Dosage: 2 TABLETS IN AM 1 TAB @NOON 1 TAB 5PM
  3. SENOKOT [Concomitant]
     Dosage: 1 TABLET
  4. MORPHINE SULFATE [Concomitant]
  5. SCOPOLAMINE PATCH [Concomitant]
     Route: 061
  6. CIPROFLOXACIN [Concomitant]
  7. VICODIN [Concomitant]

REACTIONS (6)
  - AUTONOMIC NEUROPATHY [None]
  - DISEASE PROGRESSION [None]
  - DIZZINESS [None]
  - LOSS OF CONSCIOUSNESS [None]
  - ORTHOSTATIC HYPOTENSION [None]
  - SYNCOPE [None]
